FAERS Safety Report 7991796-0 (Version None)
Quarter: 2011Q4

REPORT INFORMATION
  Report Type: 
  Country: None (occurrence: None)
  Receive Date: 20111219
  Receipt Date: 20111209
  Transmission Date: 20120403
  Serious: Yes (Hospitalization, Other)
  Sender: FDA-Public Use
  Company Number: AT-ASTRAZENECA-2011SE72527

PATIENT
  Age: 858 Month
  Sex: Male
  Weight: 86.2 kg

DRUGS (5)
  1. CRESTOR [Suspect]
     Route: 048
     Dates: start: 20101201, end: 20110801
  2. PANTOPRAZOLE SODIUM [Concomitant]
  3. MARCUMAR [Concomitant]
     Indication: ACTIVATED PROTEIN C RESISTANCE
     Dates: start: 20000101
  4. NEBILAN [Concomitant]
     Indication: HYPERTENSION
     Dosage: 5 MG 0-1-0
     Dates: start: 20100101
  5. ALNA RET [Concomitant]
     Indication: BENIGN PROSTATIC HYPERPLASIA
     Dates: start: 20100101

REACTIONS (2)
  - PANCREATITIS [None]
  - ATRIOVENTRICULAR BLOCK [None]
